FAERS Safety Report 24579163 (Version 1)
Quarter: 2024Q4

REPORT INFORMATION
  Report Type: Spontaneous
  Country: CN (occurrence: CN)
  Receive Date: 20241105
  Receipt Date: 20241105
  Transmission Date: 20250115
  Serious: Yes (Hospitalization)
  Sender: SANOFI AVENTIS
  Company Number: CN-SA-2024SA317446

PATIENT
  Age: 75 Year
  Sex: Female
  Weight: 65 kg

DRUGS (5)
  1. TOUJEO [Suspect]
     Active Substance: INSULIN GLARGINE
     Indication: Blood glucose decreased
     Dosage: 14 U, QD
     Route: 058
     Dates: start: 20240419, end: 20241022
  2. ACARBOSE [Suspect]
     Active Substance: ACARBOSE
     Indication: Blood glucose decreased
     Dosage: 100 MG, TID
     Route: 048
     Dates: start: 20240419, end: 20241011
  3. SODIUM CHLORIDE [Concomitant]
     Active Substance: SODIUM CHLORIDE
     Indication: Vehicle solution use
     Dosage: 250.000ML QD
     Route: 041
     Dates: start: 20241010, end: 20241015
  4. PAPAVERINE HYDROCHLORIDE [Concomitant]
     Active Substance: PAPAVERINE HYDROCHLORIDE
     Indication: Cardiovascular disorder
     Dosage: 90 MG, QD
     Route: 041
     Dates: start: 20241010, end: 20241015
  5. METHYLCOBALAMIN [Concomitant]
     Active Substance: METHYLCOBALAMIN
     Indication: Neuropathy peripheral
     Dosage: 0.5 MG, TID
     Route: 048
     Dates: start: 20241010, end: 20241022

REACTIONS (6)
  - Abdominal distension [Recovering/Resolving]
  - Abdominal discomfort [Recovering/Resolving]
  - Decreased appetite [Recovering/Resolving]
  - Hypoglycaemia [Recovering/Resolving]
  - Tremor [Recovering/Resolving]
  - Dizziness [Recovering/Resolving]

NARRATIVE: CASE EVENT DATE: 20241010
